FAERS Safety Report 7527803-9 (Version None)
Quarter: 2011Q2

REPORT INFORMATION
  Report Type: 
  Country: None (occurrence: None)
  Receive Date: 20110607
  Receipt Date: 20110603
  Transmission Date: 20111010
  Serious: Yes (Life-Threatening, Other)
  Sender: FDA-Public Use
  Company Number: CA-PFIZER INC-2011121194

PATIENT
  Age: 51 Year
  Sex: Male
  Weight: 85.714 kg

DRUGS (4)
  1. MAVIK [Concomitant]
     Indication: HYPERTENSION
     Dosage: 4 MG, 1X/DAY
     Route: 048
     Dates: start: 20101020
  2. PREVACID [Concomitant]
     Indication: DYSPEPSIA
     Dosage: 30 MG, 1X/DAY
     Route: 048
     Dates: start: 20070330
  3. CELEBREX [Suspect]
     Indication: OSTEOARTHRITIS
     Dosage: 200 MG, 1X/DAY
     Route: 048
     Dates: start: 20070612, end: 20110524
  4. LIPITOR [Concomitant]
     Indication: DYSLIPIDAEMIA
     Dosage: 10 MG, 1X/DAY
     Route: 048
     Dates: start: 20100406

REACTIONS (3)
  - CORONARY ANGIOPLASTY [None]
  - GASTROOESOPHAGEAL REFLUX DISEASE [None]
  - CARDIAC ENZYMES INCREASED [None]
